FAERS Safety Report 24682017 (Version 3)
Quarter: 2025Q3

REPORT INFORMATION
  Report Type: Spontaneous
  Country: EU (occurrence: EU)
  Receive Date: 20241130
  Receipt Date: 20250802
  Transmission Date: 20251020
  Serious: Yes (Hospitalization, Other)
  Sender: ALEXION PHARMACEUTICALS
  Company Number: EU-ASTRAZENECA-202411EEA018488DE

PATIENT
  Sex: Female

DRUGS (19)
  1. LYNPARZA [Suspect]
     Active Substance: OLAPARIB
  2. PALBOCICLIB [Suspect]
     Active Substance: PALBOCICLIB
     Dates: start: 20220926, end: 20221005
  3. ANASTROZOLE [Suspect]
     Active Substance: ANASTROZOLE
     Dosage: 1 MILLIGRAM, QD
     Dates: start: 20220916, end: 20231005
  4. CHOLECALCIFEROL [Concomitant]
     Active Substance: CHOLECALCIFEROL
  5. CITALOPRAM [Concomitant]
     Active Substance: CITALOPRAM
  6. Apo hydromorphone cr [Concomitant]
  7. Pregabalin alphapharm [Concomitant]
  8. XGEVA [Concomitant]
     Active Substance: DENOSUMAB
  9. Novalgin [Concomitant]
     Route: 065
  10. NORSPAN [Concomitant]
     Active Substance: BUPRENORPHINE
  11. CELEBREX [Concomitant]
     Active Substance: CELECOXIB
  12. FOLIC ACID [Concomitant]
     Active Substance: FOLIC ACID
  13. PANTOZOL [Concomitant]
     Active Substance: PANTOPRAZOLE SODIUM
  14. XARELTO [Concomitant]
     Active Substance: RIVAROXABAN
  15. LOPERAMIDE [Concomitant]
     Active Substance: LOPERAMIDE
  16. OXYBUTYNIN [Concomitant]
     Active Substance: OXYBUTYNIN
  17. SIMVASTATIN [Suspect]
     Active Substance: SIMVASTATIN
  18. MCP [Concomitant]
     Active Substance: METOCLOPRAMIDE HYDROCHLORIDE
  19. TALZENNA [Suspect]
     Active Substance: TALAZOPARIB TOSYLATE
     Indication: Bone cancer metastatic
     Dates: start: 20240717, end: 20240814

REACTIONS (3)
  - Anaemia [Unknown]
  - Metastases to bone [Unknown]
  - Malignant neoplasm progression [Unknown]
